FAERS Safety Report 7434633-5 (Version None)
Quarter: 2011Q2

REPORT INFORMATION
  Report Type: 
  Country: None (occurrence: None)
  Receive Date: 20110421
  Receipt Date: 20110421
  Transmission Date: 20111010
  Serious: No
  Sender: FDA-Public Use
  Company Number: None

PATIENT
  Sex: Male
  Weight: 31.7518 kg

DRUGS (1)
  1. AMOXICILLIN AND CLAVULANATE POTASSIUM [Suspect]
     Indication: SINUSITIS
     Dosage: 1 TSP 2X'S/DAY ORAL
     Route: 048
     Dates: start: 20110405, end: 20110408

REACTIONS (2)
  - DIARRHOEA [None]
  - PRODUCT SUBSTITUTION ISSUE [None]
